FAERS Safety Report 6123649-7 (Version None)
Quarter: 2009Q1

REPORT INFORMATION
  Report Type: 
  Country: None (occurrence: None)
  Receive Date: 20090317
  Receipt Date: 20090311
  Transmission Date: 20090719
  Serious: Yes (Other)
  Sender: FDA-Public Use
  Company Number: 2009SP005361

PATIENT

DRUGS (2)
  1. POSACONAZOLE [Suspect]
     Indication: DRUG USE FOR UNKNOWN INDICATION
  2. VINCRISTINE [Concomitant]

REACTIONS (2)
  - NEUROPATHY PERIPHERAL [None]
  - PARAESTHESIA [None]
